FAERS Safety Report 10637904 (Version 1)
Quarter: 2014Q4

REPORT INFORMATION
  Report Type: Spontaneous
  Country: US (occurrence: None)
  Receive Date: 20141204
  Receipt Date: 20141204
  Transmission Date: 20150529
  Serious: No
  Sender: FDA-Public Use
  Company Number: None

PATIENT
  Age: 68 Year
  Sex: Female

DRUGS (2)
  1. SUTENT [Suspect]
     Active Substance: SUNITINIB MALATE
     Indication: PANCREATIC CARCINOMA
     Route: 048
     Dates: start: 201406
  2. OCTREOTIDE [Concomitant]
     Active Substance: OCTREOTIDE

REACTIONS (2)
  - Abdominal discomfort [None]
  - Dysgeusia [None]

NARRATIVE: CASE EVENT DATE: 20140601
